FAERS Safety Report 25483813 (Version 1)
Quarter: 2025Q2

REPORT INFORMATION
  Report Type: Spontaneous
  Country: PT (occurrence: PT)
  Receive Date: 20250626
  Receipt Date: 20250626
  Transmission Date: 20250717
  Serious: Yes (Death, Hospitalization, Other)
  Sender: TEVA
  Company Number: PT-009507513-2287892

PATIENT
  Age: 67 Year
  Sex: Male

DRUGS (6)
  1. PACLITAXEL [Suspect]
     Active Substance: PACLITAXEL
     Indication: Transitional cell carcinoma
     Dosage: 4TH LINE, 13 CYCLES
     Route: 065
     Dates: start: 202310
  2. PEMBROLIZUMAB [Suspect]
     Active Substance: PEMBROLIZUMAB
     Indication: Transitional cell carcinoma
     Route: 065
     Dates: start: 202111
  3. CISPLATIN [Suspect]
     Active Substance: CISPLATIN
     Indication: Transitional cell carcinoma
     Route: 065
     Dates: start: 202104
  4. ERDAFITINIB [Suspect]
     Active Substance: ERDAFITINIB
     Indication: Transitional cell carcinoma
     Route: 065
     Dates: end: 202411
  5. ENFORTUMAB VEDOTIN [Suspect]
     Active Substance: ENFORTUMAB VEDOTIN
     Indication: Transitional cell carcinoma
     Route: 065
  6. GEMCITABINE [Suspect]
     Active Substance: GEMCITABINE

REACTIONS (6)
  - Obstruction [Fatal]
  - Malignant neoplasm progression [Unknown]
  - Onycholysis [Unknown]
  - Ocular toxicity [Unknown]
  - Therapy partial responder [Unknown]
  - Antisynthetase syndrome [Unknown]

NARRATIVE: CASE EVENT DATE: 20230901
